FAERS Safety Report 7608992-4 (Version None)
Quarter: 2011Q3

REPORT INFORMATION
  Report Type: 
  Country: None (occurrence: None)
  Receive Date: 20110714
  Receipt Date: 20110708
  Transmission Date: 20111222
  Serious: Yes (Death)
  Sender: FDA-Public Use
  Company Number: US-CELGENEUS-163-20785-11062188

PATIENT
  Sex: Male

DRUGS (6)
  1. PANTOPRAZOLE [Concomitant]
     Dosage: 40 MILLIGRAM
     Route: 048
  2. PREDNISONE [Concomitant]
     Dosage: 20 MILLIGRAM
     Route: 048
  3. DOXAZOSIN MESYLATE [Concomitant]
     Dosage: 8 MILLIGRAM
     Route: 048
  4. TAZTIA [Concomitant]
     Indication: BLOOD PRESSURE
     Dosage: 360 MILLIGRAM
     Route: 048
  5. THALOMID [Suspect]
     Indication: MULTIPLE MYELOMA
     Dosage: 50 MILLIGRAM
     Route: 048
     Dates: start: 20110516, end: 20110526
  6. ASPIRIN [Concomitant]
     Dosage: 81 MILLIGRAM
     Route: 048

REACTIONS (2)
  - SEPSIS [None]
  - ACUTE RESPIRATORY FAILURE [None]
